FAERS Safety Report 15074893 (Version 1)
Quarter: 2018Q2

REPORT INFORMATION
  Report Type: Report from Study
  Country: US (occurrence: US)
  Receive Date: 20180627
  Receipt Date: 20180627
  Transmission Date: 20180711
  Serious: Yes (Other)
  Sender: FDA-Public Use
  Company Number: US-SAOL THERAPEUTICS-2017SAO01553

PATIENT
  Sex: Male

DRUGS (18)
  1. COMPOUNDED BACLOFEN [Suspect]
     Active Substance: BACLOFEN
     Dosage: 175.64 ?G, \DAY-MAX
     Route: 037
     Dates: start: 20170623
  2. DILAUDID [Suspect]
     Active Substance: HYDROMORPHONE HYDROCHLORIDE
     Dosage: 1.9976 MG, \DAY
     Route: 037
     Dates: start: 20170619, end: 20170622
  3. DILAUDID [Suspect]
     Active Substance: HYDROMORPHONE HYDROCHLORIDE
     Dosage: 3.1652 MG, \DAY- MAX
     Route: 037
     Dates: start: 20170619, end: 20170622
  4. DILAUDID [Suspect]
     Active Substance: HYDROMORPHONE HYDROCHLORIDE
     Dosage: 2.7485 MG, \DAY
     Route: 037
     Dates: start: 20170622, end: 20170623
  5. DILAUDID [Suspect]
     Active Substance: HYDROMORPHONE HYDROCHLORIDE
     Dosage: 3.9035 MG, \DAY-MAX
     Route: 037
     Dates: start: 20170622, end: 20170623
  6. BUPIVACAINE. [Suspect]
     Active Substance: BUPIVACAINE
     Dosage: 14.982 MG, \DAY
     Route: 037
     Dates: start: 20170619, end: 20170622
  7. BUPIVACAINE. [Suspect]
     Active Substance: BUPIVACAINE
     Dosage: 29.276 MG, \DAY-MAX
     Route: 037
     Dates: start: 20170622, end: 20170623
  8. COMPOUNDED BACLOFEN [Suspect]
     Active Substance: BACLOFEN
     Dosage: 99.88 ?G, \DAY
     Route: 037
     Dates: start: 20170619, end: 20170622
  9. DILAUDID [Suspect]
     Active Substance: HYDROMORPHONE HYDROCHLORIDE
     Dosage: 3.5129 MG, \DAY-MAX
     Route: 037
     Dates: start: 20170623
  10. COMPOUNDED BACLOFEN [Suspect]
     Active Substance: BACLOFEN
     Dosage: 195.18 ?G, \DAY-MAX
     Route: 037
     Dates: start: 20170622, end: 20170623
  11. BUPIVACAINE. [Suspect]
     Active Substance: BUPIVACAINE
     Dosage: 20.614 MG/DAY
     Route: 037
     Dates: start: 20170622, end: 20170623
  12. BUPIVACAINE. [Suspect]
     Active Substance: BUPIVACAINE
     Dosage: 17.634 MG, \DAY
     Route: 037
     Dates: start: 20170623
  13. BUPIVACAINE. [Suspect]
     Active Substance: BUPIVACAINE
     Dosage: 26.346 MG, \DAY-MAX
     Route: 037
     Dates: start: 20170623
  14. COMPOUNDED BACLOFEN [Suspect]
     Active Substance: BACLOFEN
     Dosage: 137.42 ?G/DAY
     Route: 037
     Dates: start: 20170622, end: 20170623
  15. COMPOUNDED BACLOFEN [Suspect]
     Active Substance: BACLOFEN
     Dosage: 117.56 ?G, \DAY
     Route: 037
     Dates: start: 20170623
  16. BUPIVACAINE. [Suspect]
     Active Substance: BUPIVACAINE
     Dosage: 23.739 MG, \DAY-MAX
     Route: 037
     Dates: start: 20170619, end: 20170622
  17. COMPOUNDED BACLOFEN [Suspect]
     Active Substance: BACLOFEN
     Dosage: 158.26 ?G, \DAY-MAX
     Route: 037
     Dates: start: 20170619, end: 20170622
  18. DILAUDID [Suspect]
     Active Substance: HYDROMORPHONE HYDROCHLORIDE
     Dosage: 2.3512 MG, \DAY
     Route: 037
     Dates: start: 20170623

REACTIONS (3)
  - Therapy non-responder [Recovered/Resolved]
  - Fatigue [Recovered/Resolved]
  - Dyspnoea [Recovered/Resolved]

NARRATIVE: CASE EVENT DATE: 20160622
